FAERS Safety Report 8346915-3 (Version None)
Quarter: 2012Q2

REPORT INFORMATION
  Report Type: 
  Country: None (occurrence: None)
  Receive Date: 20120509
  Receipt Date: 20120503
  Transmission Date: 20120825
  Serious: Yes (Hospitalization)
  Sender: FDA-Public Use
  Company Number: PHHY2012IN037827

PATIENT
  Age: 45 Year
  Sex: Female

DRUGS (4)
  1. ISONIAZID [Suspect]
     Indication: TUBERCULOSIS
  2. ETHAMBUTOL HYDROCHLORIDE [Suspect]
     Indication: TUBERCULOSIS
  3. RIFAMPICIN [Suspect]
     Indication: TUBERCULOSIS
  4. PYRAZINAMIDE [Suspect]

REACTIONS (4)
  - ACUTE HEPATIC FAILURE [None]
  - DEPRESSED LEVEL OF CONSCIOUSNESS [None]
  - HEPATIC ENCEPHALOPATHY [None]
  - JAUNDICE [None]
